FAERS Safety Report 15208566 (Version 1)
Quarter: 2018Q3

REPORT INFORMATION
  Report Type: Spontaneous
  Country: GB (occurrence: DK)
  Receive Date: 20180727
  Receipt Date: 20180727
  Transmission Date: 20181010
  Serious: Yes (Other)
  Sender: FDA-Public Use
  Company Number: DK-FRESENIUS KABI-FK201808143

PATIENT
  Age: 73 Year
  Sex: Female

DRUGS (8)
  1. ZOLEDRONIC ACID [Suspect]
     Active Substance: ZOLEDRONIC ACID
     Indication: METASTASES TO BONE
     Route: 042
     Dates: start: 20180208, end: 20180403
  2. AMLODIPINE [Concomitant]
     Active Substance: AMLODIPINE BESYLATE
     Indication: HYPERTENSION
     Route: 048
     Dates: start: 20180223
  3. UNIKALK MED D?VITAMIN [Concomitant]
     Indication: MINERAL SUPPLEMENTATION
     Route: 048
     Dates: start: 20180207
  4. VOTRIENT [Concomitant]
     Active Substance: PAZOPANIB HYDROCHLORIDE
     Indication: RENAL CANCER METASTATIC
     Route: 048
     Dates: start: 20180110
  5. VAGIFEM [Concomitant]
     Active Substance: ESTRADIOL
     Indication: HORMONE REPLACEMENT THERAPY
     Route: 067
     Dates: start: 20171204
  6. ANCOZAN [Concomitant]
     Active Substance: LOSARTAN POTASSIUM
     Indication: HYPERTENSION
     Route: 048
     Dates: start: 20180208
  7. PARACETAMOL [Concomitant]
     Active Substance: ACETAMINOPHEN
     Indication: PAIN
     Route: 048
     Dates: start: 20180105
  8. PANTOPRAZOL [Concomitant]
     Active Substance: PANTOPRAZOLE SODIUM
     Indication: GASTRIC ULCER
     Route: 048
     Dates: start: 20180302

REACTIONS (9)
  - Localised infection [Recovered/Resolved]
  - Pain in jaw [Recovered/Resolved]
  - Sequestrectomy [Recovered/Resolved]
  - Oral disorder [Unknown]
  - Swelling [Recovered/Resolved]
  - Osteonecrosis of jaw [Not Recovered/Not Resolved]
  - Gingivitis [Recovered/Resolved]
  - Oral pain [Recovered/Resolved]
  - Exposed bone in jaw [Unknown]

NARRATIVE: CASE EVENT DATE: 201804
